FAERS Safety Report 24796137 (Version 1)
Quarter: 2025Q1

REPORT INFORMATION
  Report Type: Spontaneous
  Country: IR (occurrence: None)
  Receive Date: 20250101
  Receipt Date: 20250101
  Transmission Date: 20250408
  Serious: Yes (Death, Hospitalization)
  Sender: ENCUBE ETHICALS
  Company Number: IR-Encube-001531

PATIENT
  Age: 5 Year
  Sex: Male

DRUGS (1)
  1. CLOBETASOL PROPIONATE [Suspect]
     Active Substance: CLOBETASOL PROPIONATE
     Indication: Psoriasis
     Dosage: APPLIED APPROXIMATELY 30  G

REACTIONS (6)
  - Pseudo Cushing^s syndrome [Fatal]
  - Off label use [Unknown]
  - Product use issue [Unknown]
  - Intentional product misuse to child [Unknown]
  - Vomiting [Fatal]
  - Overdose [Unknown]
